FAERS Safety Report 5585272-2 (Version None)
Quarter: 2008Q1

REPORT INFORMATION
  Report Type: 
  Country: None (occurrence: None)
  Receive Date: 20080104
  Receipt Date: 20080104
  Transmission Date: 20080703
  Serious: No
  Sender: FDA-Public Use
  Company Number: None

PATIENT
  Age: 52 Year
  Sex: Female
  Weight: 68.0396 kg

DRUGS (1)
  1. BUDEPRION XL 300MG TEVA [Suspect]
     Indication: DEPRESSION
     Dosage: 1 TABLET ONCE DAILY PO
     Route: 048
     Dates: start: 20061231, end: 20070102

REACTIONS (11)
  - ABDOMINAL PAIN UPPER [None]
  - ANXIETY [None]
  - BLOOD PRESSURE INCREASED [None]
  - GASTROINTESTINAL SOUNDS ABNORMAL [None]
  - HEADACHE [None]
  - HEART RATE INCREASED [None]
  - PALPITATIONS [None]
  - PHARMACEUTICAL PRODUCT COMPLAINT [None]
  - THIRST [None]
  - TINNITUS [None]
  - TREMOR [None]
